FAERS Safety Report 11941107 (Version 2)
Quarter: 2016Q4

REPORT INFORMATION
  Report Type: Spontaneous
  Country: NO (occurrence: NO)
  Receive Date: 20160122
  Receipt Date: 20161116
  Transmission Date: 20170206
  Serious: Yes (Hospitalization, Other)
  Sender: FDA-Public Use
  Company Number: NO-ASTRAZENECA-2016SE05683

PATIENT
  Age: 710 Month
  Sex: Female

DRUGS (12)
  1. SEROQUEL [Suspect]
     Active Substance: QUETIAPINE FUMARATE
     Indication: PSYCHOTIC DISORDER
     Route: 048
     Dates: start: 20121117
  2. SEROQUEL [Suspect]
     Active Substance: QUETIAPINE FUMARATE
     Indication: PSYCHOTIC DISORDER
     Route: 048
  3. UNSPECIFIED [Concomitant]
     Active Substance: UNSPECIFIED INGREDIENT
  4. TRAMADOL. [Concomitant]
     Active Substance: TRAMADOL
  5. TRILAFON [Concomitant]
     Active Substance: PERPHENAZINE
  6. SEROQUEL [Suspect]
     Active Substance: QUETIAPINE FUMARATE
     Indication: PSYCHOTIC DISORDER
     Route: 048
  7. SEROQUEL [Suspect]
     Active Substance: QUETIAPINE FUMARATE
     Indication: PSYCHOTIC DISORDER
     Route: 048
     Dates: end: 201502
  8. EFEXOR [Concomitant]
     Active Substance: VENLAFAXINE HYDROCHLORIDE
  9. SEROQUEL [Suspect]
     Active Substance: QUETIAPINE FUMARATE
     Indication: PSYCHOTIC DISORDER
     Route: 048
  10. PAIN KILLER [Concomitant]
     Indication: PAIN
  11. HALDOL [Concomitant]
     Active Substance: HALOPERIDOL
  12. ABILIFY [Concomitant]
     Active Substance: ARIPIPRAZOLE

REACTIONS (10)
  - Coma [Unknown]
  - Autoimmune hepatitis [Unknown]
  - Pain [Unknown]
  - Somnolence [Unknown]
  - Suicidal ideation [Unknown]
  - Acute hepatic failure [Unknown]
  - Hepatic cirrhosis [Unknown]
  - Personality disorder [Unknown]
  - Dizziness [Unknown]
  - Fatigue [Unknown]

NARRATIVE: CASE EVENT DATE: 201304
